FAERS Safety Report 8839894 (Version 1)
Quarter: 2012Q4

REPORT INFORMATION
  Report Type: Spontaneous
  Country: GB (occurrence: None)
  Receive Date: 20121011
  Receipt Date: 20121011
  Transmission Date: 20130627
  Serious: Yes (Other)
  Sender: FDA-Public Use
  Company Number: 1434733

PATIENT

DRUGS (6)
  1. VINCRISTINE SULFATE [Suspect]
     Indication: DRUG USE FOR UNKNOWN INDICATION
  2. ETOPOSIDE [Suspect]
  3. DOXORUBICIN [Suspect]
     Route: 042
  4. VELCADE [Suspect]
  5. PREDNISOLONE [Suspect]
  6. RITUXIMAB [Suspect]

REACTIONS (4)
  - Febrile neutropenia [None]
  - Neuropathy peripheral [None]
  - Pain [None]
  - Haematotoxicity [None]
